FAERS Safety Report 15620372 (Version 5)
Quarter: 2019Q4

REPORT INFORMATION
  Report Type: Spontaneous
  Country: CA (occurrence: CA)
  Receive Date: 20181115
  Receipt Date: 20191121
  Transmission Date: 20200122
  Serious: Yes (Death, Life-Threatening, Hospitalization, Other)
  Sender: FDA-Public Use
  Company Number: CA-TEVA-2018-CA-976069

PATIENT
  Age: 81 Year
  Sex: Female

DRUGS (8)
  1. CODEINE [Suspect]
     Active Substance: CODEINE
     Indication: PRODUCT USED FOR UNKNOWN INDICATION
     Route: 065
  2. MORPHINE [Suspect]
     Active Substance: MORPHINE
     Indication: PRODUCT USED FOR UNKNOWN INDICATION
     Route: 065
  3. SANDOSTATIN [Suspect]
     Active Substance: OCTREOTIDE ACETATE
     Indication: METASTASES TO LIVER
     Route: 030
  4. SANDOSTATIN [Suspect]
     Active Substance: OCTREOTIDE ACETATE
     Route: 030
  5. SANDOSTATIN [Suspect]
     Active Substance: OCTREOTIDE ACETATE
     Indication: NEUROENDOCRINE TUMOUR OF THE LUNG
     Route: 058
  6. SANDOSTATIN [Suspect]
     Active Substance: OCTREOTIDE ACETATE
     Route: 030
  7. MORPHINE SULFATE INJECTION 1MG/ML [Suspect]
     Active Substance: MORPHINE SULFATE
     Indication: PRODUCT USED FOR UNKNOWN INDICATION
     Route: 065
  8. SANDOSTATIN [Suspect]
     Active Substance: OCTREOTIDE ACETATE
     Indication: LUNG NEOPLASM
     Route: 058

REACTIONS (27)
  - Blindness [Fatal]
  - Irritable bowel syndrome [Fatal]
  - Blood pressure increased [Fatal]
  - Abdominal pain upper [Fatal]
  - Blood pressure diastolic increased [Fatal]
  - Fall [Fatal]
  - Cough [Fatal]
  - Diplopia [Fatal]
  - Lethargy [Fatal]
  - Neoplasm progression [Fatal]
  - Weight decreased [Fatal]
  - Blood pressure systolic increased [Fatal]
  - Metastasis [Fatal]
  - Pyrexia [Fatal]
  - Respiratory rate increased [Fatal]
  - Malaise [Fatal]
  - Lower respiratory tract infection [Fatal]
  - Terminal state [Fatal]
  - Chills [Fatal]
  - Dyspnoea [Fatal]
  - Malignant neoplasm progression [Fatal]
  - Pain [Fatal]
  - Eating disorder [Fatal]
  - General physical health deterioration [Fatal]
  - Hypokinesia [Fatal]
  - Metastases to eye [Fatal]
  - Abdominal pain [Fatal]
